FAERS Safety Report 12626468 (Version 1)
Quarter: 2016Q3

REPORT INFORMATION
  Report Type: Spontaneous
  Country: US (occurrence: US)
  Receive Date: 20160805
  Receipt Date: 20160805
  Transmission Date: 20161109
  Serious: No
  Sender: FDA-Public Use
  Company Number: US-ACTAVIS-2015-22781

PATIENT
  Sex: Female

DRUGS (4)
  1. NYSTATIN (AMALLC) (NYSTATIN) CREAM, 100,000U/G [Suspect]
     Active Substance: NYSTATIN
     Indication: DYSGEUSIA
  2. DICYCLOMINE HYDROCHLORIDE (WATSON LABORATORIES) [Suspect]
     Active Substance: DICYCLOMINE HYDROCHLORIDE
     Indication: ABDOMINAL PAIN UPPER
     Dosage: UNK, UNKNOWN
     Dates: start: 2015
  3. NYSTATIN (AMALLC) (NYSTATIN) CREAM, 100,000U/G [Suspect]
     Active Substance: NYSTATIN
     Indication: COATING IN MOUTH
     Dosage: UNK, UNKNOWN
     Route: 065
     Dates: start: 2015
  4. METFORMIN [Concomitant]
     Active Substance: METFORMIN HYDROCHLORIDE
     Indication: DIABETES MELLITUS
     Dosage: 500 MG, TID
     Route: 048
     Dates: start: 201504

REACTIONS (2)
  - Drug ineffective [Unknown]
  - Product use issue [Unknown]

NARRATIVE: CASE EVENT DATE: 2015
